FAERS Safety Report 13683138 (Version 1)
Quarter: 2017Q2

REPORT INFORMATION
  Report Type: Spontaneous
  Country: FR (occurrence: FR)
  Receive Date: 20170623
  Receipt Date: 20170623
  Transmission Date: 20170830
  Serious: Yes (Other)
  Sender: FDA-Public Use
  Company Number: FR-BAXTER-2017BAX023944

PATIENT
  Age: 60 Year
  Sex: Male

DRUGS (2)
  1. ENDOXAN 1000 MG, POUDRE POUR SOLUTION INJECTABLE [Suspect]
     Active Substance: CYCLOPHOSPHAMIDE
     Indication: CHRONIC LYMPHOCYTIC LEUKAEMIA
     Route: 065
     Dates: end: 201611
  2. FLUDARA [Suspect]
     Active Substance: FLUDARABINE PHOSPHATE
     Indication: CHRONIC LYMPHOCYTIC LEUKAEMIA
     Route: 065
     Dates: end: 201611

REACTIONS (3)
  - Bladder cancer [Not Recovered/Not Resolved]
  - Pulmonary mass [Unknown]
  - Polyp [Unknown]

NARRATIVE: CASE EVENT DATE: 20170504
